FAERS Safety Report 21888403 (Version 1)
Quarter: 2023Q1

REPORT INFORMATION
  Report Type: Report from Study
  Country: US (occurrence: US)
  Receive Date: 20230120
  Receipt Date: 20230120
  Transmission Date: 20230418
  Serious: No
  Sender: FDA-Public Use
  Company Number: US-ABBVIE-4245592

PATIENT
  Sex: Female

DRUGS (1)
  1. HUMIRA [Suspect]
     Active Substance: ADALIMUMAB
     Indication: Ankylosing spondylitis
     Dosage: ONSET DATE FOR ANKYLOSING SPONDYLITIS FLARE UP AND WEARING OFF EFFECT WAS 2022.
     Route: 058
     Dates: start: 20220801

REACTIONS (2)
  - Therapeutic response shortened [Unknown]
  - Ankylosing spondylitis [Recovered/Resolved with Sequelae]
